FAERS Safety Report 4546186-X (Version None)
Quarter: 2005Q1

REPORT INFORMATION
  Report Type: 
  Country: None (occurrence: None)
  Receive Date: 20050103
  Receipt Date: 20041220
  Transmission Date: 20050727
  Serious: Yes (Hospitalization)
  Sender: FDA-Public Use
  Company Number: 2004239533AU

PATIENT
  Sex: Female

DRUGS (2)
  1. CELEBREX [Suspect]
     Indication: ILL-DEFINED DISORDER
     Dosage: SEE IMAGE, ORAL
     Route: 048
  2. OMEPRAZOLE [Concomitant]

REACTIONS (3)
  - ANGIOPATHY [None]
  - CHEST PAIN [None]
  - PERICARDIAL EFFUSION [None]
